FAERS Safety Report 6272318-1 (Version None)
Quarter: 2009Q3

REPORT INFORMATION
  Report Type: 
  Country: None (occurrence: None)
  Receive Date: 20090715
  Receipt Date: 20090629
  Transmission Date: 20100115
  Serious: Yes (Other)
  Sender: FDA-Public Use
  Company Number: 20090987

PATIENT
  Sex: Female
  Weight: 88.43 kg

DRUGS (8)
  1. OMEPRAZOLE [Suspect]
     Indication: DYSPEPSIA
     Dosage: 20 MG ONCE A DAY, ORAL
     Route: 048
     Dates: start: 20080301
  2. WARFARIN SODIUM [Concomitant]
  3. METHOCARBAMOL [Concomitant]
  4. DIAZEPAM [Concomitant]
  5. OXYBUTYNIN CHLORIDE [Concomitant]
  6. HYDROCHLOROTHIAZIDE [Concomitant]
  7. POTASSIUM GLUCONATE [Concomitant]
  8. ATENOLOL [Concomitant]

REACTIONS (1)
  - VITAMIN B12 DEFICIENCY [None]
